FAERS Safety Report 11444848 (Version 1)
Quarter: 2015Q3

REPORT INFORMATION
  Report Type: Spontaneous
  Country: GB (occurrence: None)
  Receive Date: 20150831
  Receipt Date: 20150831
  Transmission Date: 20151125
  Serious: Yes (Disabling, Other)
  Sender: FDA-Public Use
  Company Number: KAD201508-002757

PATIENT
  Age: 60 Year
  Sex: Male
  Weight: 70 kg

DRUGS (13)
  1. FUROSEMIDE. [Concomitant]
     Active Substance: FUROSEMIDE
  2. PROCHLORPERAZINE. [Concomitant]
     Active Substance: PROCHLORPERAZINE
  3. AMLODIPINE [Concomitant]
     Active Substance: AMLODIPINE BESYLATE
  4. ACIDEX (SODIUM ALGINATE, SODIUM BICARBONATE, CALCIUM CARBONATE) (SODIUM ALGINATE, SODIU, BICARBONATE, CALCIUM CARBONATE) [Concomitant]
  5. RENAVIR (MULTIVITAMIN) (MULTIVITAMIN) [Concomitant]
  6. TINZAPARIN [Concomitant]
     Active Substance: TINZAPARIN
  7. RIBAVIRIN (RIBAVIRIN) [Suspect]
     Active Substance: RIBAVIRIN
     Indication: HEPATITIS C VIRUS TEST POSITIVE
     Route: 048
     Dates: start: 201410, end: 201508
  8. INTERFERON ALFA NOS [Suspect]
     Active Substance: INTERFERON ALFA-2A OR INTERFERON ALFA-2B
     Indication: HEPATITIS C
     Dosage: 135, ONE IN ONE WEEK, SUBCUTANEOUS
     Route: 058
     Dates: start: 201410, end: 201508
  9. AMITRIPTYLINE [Concomitant]
     Active Substance: AMITRIPTYLINE
  10. PERINDOPRIL [Concomitant]
     Active Substance: PERINDOPRIL
  11. PARACETAMOL [Concomitant]
     Active Substance: ACETAMINOPHEN
  12. ALFACALCIDOL [Concomitant]
     Active Substance: ALFACALCIDOL
  13. DARBEPOETIN ALFA [Concomitant]
     Active Substance: DARBEPOETIN ALFA

REACTIONS (1)
  - Tooth loss [None]
